FAERS Safety Report 12987561 (Version 1)
Quarter: 2016Q4

REPORT INFORMATION
  Report Type: Spontaneous
  Country: US (occurrence: US)
  Receive Date: 20161130
  Receipt Date: 20161130
  Transmission Date: 20170207
  Serious: No
  Sender: FDA-Public Use
  Company Number: US-SA-2016SA004150

PATIENT
  Sex: Male

DRUGS (3)
  1. FOSRENOL [Suspect]
     Active Substance: LANTHANUM CARBONATE
     Route: 065
     Dates: start: 201512
  2. RENVELA [Suspect]
     Active Substance: SEVELAMER CARBONATE
     Route: 065
     Dates: start: 201510
  3. FOSRENOL [Suspect]
     Active Substance: LANTHANUM CARBONATE
     Route: 065
     Dates: start: 201411, end: 201512

REACTIONS (1)
  - Hyperphosphataemia [Unknown]
